FAERS Safety Report 5179762-4 (Version None)
Quarter: 2006Q4

REPORT INFORMATION
  Report Type: 
  Country: None (occurrence: None)
  Receive Date: 20061211
  Receipt Date: 20061129
  Transmission Date: 20070319
  Serious: Yes (Disabling)
  Sender: FDA-Public Use
  Company Number: 2006133216

PATIENT
  Age: 59 Year
  Sex: Male

DRUGS (3)
  1. ATARAX [Suspect]
     Dosage: 25 MG, INTRAMUSCULAR
     Route: 030
     Dates: start: 20060815
  2. ATROPINE SULFATE [Concomitant]
  3. HYOSCINE HBR HYT [Concomitant]

REACTIONS (5)
  - ACTIVITIES OF DAILY LIVING IMPAIRED [None]
  - GASTRIC POLYPS [None]
  - MOVEMENT DISORDER [None]
  - MUSCLE ATROPHY [None]
  - PAIN IN EXTREMITY [None]
